FAERS Safety Report 5054593-4 (Version None)
Quarter: 2006Q2

REPORT INFORMATION
  Report Type: 
  Country: None (occurrence: None)
  Receive Date: 20060616
  Receipt Date: 20060308
  Transmission Date: 20061013
  Serious: No
  Sender: FDA-Public Use
  Company Number: 2006US000523

PATIENT
  Age: 54 Year
  Sex: Female

DRUGS (3)
  1. VESICARE [Suspect]
     Indication: HYPERTONIC BLADDER
     Dosage: ORAL
     Route: 048
     Dates: start: 20060221, end: 20060302
  2. ESTRATEST [Concomitant]
  3. CLARINEX (PSEUDOEPHEDRINE SULFATE, LORATADINE) [Concomitant]

REACTIONS (1)
  - DRY EYE [None]
